FAERS Safety Report 13351984 (Version 1)
Quarter: 2017Q1

REPORT INFORMATION
  Report Type: Spontaneous
  Country: US (occurrence: US)
  Receive Date: 20170320
  Receipt Date: 20170320
  Transmission Date: 20170429
  Serious: No
  Sender: FDA-Public Use
  Company Number: US-SA-2016SA051796

PATIENT
  Age: 33 Year
  Sex: Female

DRUGS (1)
  1. NASACORT ALLERGY 24HR [Suspect]
     Active Substance: TRIAMCINOLONE ACETONIDE
     Dosage: FORM: NASAL SPRAY
     Route: 065
     Dates: start: 20160310

REACTIONS (3)
  - Vomiting [Unknown]
  - Dizziness [Unknown]
  - Epistaxis [Unknown]
